FAERS Safety Report 11354798 (Version 1)
Quarter: 2015Q3

REPORT INFORMATION
  Report Type: Spontaneous
  Country: US (occurrence: US)
  Receive Date: 20150807
  Receipt Date: 20150807
  Transmission Date: 20151125
  Serious: No
  Sender: FDA-Public Use
  Company Number: US-JNJFOC-20150606707

PATIENT
  Age: 65 Year
  Sex: Female
  Weight: 59.42 kg

DRUGS (3)
  1. KENALOG [Concomitant]
     Active Substance: TRIAMCINOLONE ACETONIDE
     Indication: ALOPECIA AREATA
     Dosage: 1 SHOT/EVERY 6 WKS
     Route: 065
  2. WOMENS ROGAINE UNSCENTED [Suspect]
     Active Substance: MINOXIDIL
     Route: 061
  3. WOMENS ROGAINE UNSCENTED [Suspect]
     Active Substance: MINOXIDIL
     Indication: ALOPECIA AREATA
     Dosage: 1/2 CAP
     Route: 061
     Dates: start: 2015

REACTIONS (4)
  - Product formulation issue [Unknown]
  - Off label use [Not Recovered/Not Resolved]
  - Therapeutic response unexpected [Unknown]
  - Hair colour changes [Not Recovered/Not Resolved]
